FAERS Safety Report 18822230 (Version 2)
Quarter: 2021Q1

REPORT INFORMATION
  Report Type: Spontaneous
  Country: IT (occurrence: IT)
  Receive Date: 20210202
  Receipt Date: 20210223
  Transmission Date: 20210419
  Serious: Yes (Hospitalization, Other)
  Sender: FDA-Public Use
  Company Number: IT-SA-2021SA026677

PATIENT
  Age: 53 Year
  Sex: Female

DRUGS (4)
  1. ACETYLSALICYLIC ACID [Concomitant]
     Active Substance: ASPIRIN
     Indication: ACUTE CORONARY SYNDROME
     Dosage: UNK
  2. ATORVASTATIN [Interacting]
     Active Substance: ATORVASTATIN
     Indication: ACUTE CORONARY SYNDROME
     Dosage: UNK
  3. PANTOPRAZOLE [Interacting]
     Active Substance: PANTOPRAZOLE
     Indication: ACUTE CORONARY SYNDROME
     Dosage: UNK
  4. CLOPIDOGREL BISULFATE. [Suspect]
     Active Substance: CLOPIDOGREL BISULFATE
     Indication: ANTIPLATELET THERAPY
     Dosage: 75 MG

REACTIONS (13)
  - Arthralgia [Recovering/Resolving]
  - Gamma-glutamyltransferase increased [Recovering/Resolving]
  - Jaundice [Recovering/Resolving]
  - Alanine aminotransferase increased [Recovering/Resolving]
  - Asthenia [Recovering/Resolving]
  - Hepatic steatosis [Recovering/Resolving]
  - Hepatitis acute [Recovering/Resolving]
  - Papule [Recovering/Resolving]
  - Portal tract inflammation [Recovering/Resolving]
  - Chromaturia [Recovering/Resolving]
  - Treatment noncompliance [Recovering/Resolving]
  - Aspartate aminotransferase increased [Recovering/Resolving]
  - Oedema [Recovering/Resolving]
